FAERS Safety Report 4855460-9 (Version None)
Quarter: 2005Q4

REPORT INFORMATION
  Report Type: 
  Country: None (occurrence: None)
  Receive Date: 20051216
  Receipt Date: 20051212
  Transmission Date: 20060501
  Serious: Yes (Hospitalization, Other)
  Sender: FDA-Public Use
  Company Number: FR-RB-2449-2005

PATIENT
  Age: 40 Year
  Sex: Male
  Weight: 70 kg

DRUGS (13)
  1. BUPRENORPHINE HCL [Suspect]
     Indication: DRUG DEPENDENCE
     Dosage: DOSAGE UNKNOWN
     Route: 048
     Dates: start: 19960101
  2. BUPRENORPHINE HCL [Suspect]
     Dosage: DOSAGE UNKNOWN
     Route: 048
     Dates: start: 20051016, end: 20051019
  3. BUPRENORPHINE HCL [Suspect]
     Route: 048
     Dates: start: 20051023, end: 20051031
  4. COMBIVIR [Suspect]
     Indication: HIV INFECTION
     Dosage: DOSAGE UNKNOWN
     Route: 065
     Dates: start: 20040101, end: 20051017
  5. ALCOHOL [Suspect]
     Indication: ALCOHOLISM
     Dosage: DOSAGE UNKNOWN
     Route: 065
  6. BACTRIM [Concomitant]
     Indication: PNEUMONIA PNEUMOCOCCAL
     Route: 042
     Dates: start: 20051018, end: 20051025
  7. AMOXICILLIN TRIHYDRATE [Concomitant]
     Indication: PNEUMONIA PNEUMOCOCCAL
     Route: 042
     Dates: start: 20051018, end: 20051025
  8. PENTAMIDINE ISETHIONATE [Concomitant]
     Indication: PNEUMONIA PNEUMOCOCCAL
     Dosage: DOSAGE UNKNOWN
     Route: 055
     Dates: start: 20051026, end: 20051026
  9. AUGMENTIN [Concomitant]
     Indication: PNEUMONIA PNEUMOCOCCAL
     Route: 065
     Dates: start: 20051017, end: 20051017
  10. ATOVAQUONE [Concomitant]
     Indication: PNEUMONIA PNEUMOCOCCAL
     Route: 065
     Dates: start: 20051027
  11. MORPHINE [Concomitant]
     Indication: DRUG USE FOR UNKNOWN INDICATION
     Dosage: DOSAGE UNKNOWN
     Route: 065
     Dates: start: 20051020, end: 20051022
  12. DIAZEPAM [Concomitant]
     Indication: DRUG USE FOR UNKNOWN INDICATION
     Dosage: 2 TO 15 MG ONCE A DAY
     Route: 065
     Dates: start: 20051016
  13. CLORAZEPATE DIPOTASSIUM [Concomitant]
     Indication: DRUG USE FOR UNKNOWN INDICATION
     Dosage: 50 - 200 MG QD
     Route: 065
     Dates: start: 20051016

REACTIONS (12)
  - ABDOMINAL PAIN [None]
  - ASCITES [None]
  - HEPATIC CIRRHOSIS [None]
  - HEPATIC ENCEPHALOPATHY [None]
  - HEPATOMEGALY [None]
  - HYPERBILIRUBINAEMIA [None]
  - PANCREATITIS [None]
  - PNEUMOCYSTIS JIROVECI PNEUMONIA [None]
  - PNEUMONIA PNEUMOCOCCAL [None]
  - SPLENOMEGALY [None]
  - THROMBOCYTOPENIA [None]
  - VARICES OESOPHAGEAL [None]
